FAERS Safety Report 20019208 (Version 7)
Quarter: 2021Q4

REPORT INFORMATION
  Report Type: Report from Study
  Country: UA (occurrence: UA)
  Receive Date: 20211101
  Receipt Date: 20211201
  Transmission Date: 20220303
  Serious: Yes (Death, Hospitalization)
  Sender: FDA-Public Use
  Company Number: UA-CELGENE-UKR-20211007832

PATIENT
  Sex: Male

DRUGS (15)
  1. OZANIMOD [Suspect]
     Active Substance: OZANIMOD
     Indication: Relapsing multiple sclerosis
     Dosage: 1 MILLIGRAM
     Route: 048
     Dates: start: 20161121, end: 20211026
  2. ESCITALOPRAM [Concomitant]
     Active Substance: ESCITALOPRAM OXALATE
     Indication: Depression
     Dosage: 10 MILLIGRAM
     Route: 048
     Dates: start: 20190809
  3. Analgin [Concomitant]
     Indication: Headache
     Dosage: 500 MILLIGRAM
     Route: 048
  4. Analgin [Concomitant]
     Dosage: 500 MILLIGRAM
     Route: 048
  5. ACETAMINOPHEN [Concomitant]
     Active Substance: ACETAMINOPHEN
     Indication: Headache
     Dosage: 500 MILLIGRAM
     Route: 048
  6. ACETAMINOPHEN [Concomitant]
     Active Substance: ACETAMINOPHEN
     Indication: COVID-19
     Dosage: 500 MILLIGRAM
     Route: 048
     Dates: start: 20211013, end: 20211024
  7. LISINOPRIL [Concomitant]
     Active Substance: LISINOPRIL
     Indication: Headache
     Dosage: 5 MILLIGRAM
     Route: 048
  8. Dental intervention [Concomitant]
     Indication: Pulpitis dental
     Dosage: UNKNOWN
     Route: 050
  9. ASPIRIN [Concomitant]
     Active Substance: ASPIRIN
     Indication: Pulpitis dental
     Dosage: 500 MILLIGRAM
     Route: 048
  10. CARBO ACTIVATUS [Concomitant]
     Indication: Pulpitis dental
     Dosage: 2.5 GRAM
     Route: 048
  11. Hypertonic salt solution [Concomitant]
     Indication: Pulpitis dental
     Dosage: 1 CUP DOSING UNIT
     Route: 061
  12. Ipidacrin [Concomitant]
     Indication: Fatigue
     Dosage: 20 MILLIGRAM
     Route: 048
  13. Tera-flu [Concomitant]
     Indication: Respiratory tract infection
     Dosage: 1 BAG DOSING
     Route: 048
  14. ASCORBIC ACID [Concomitant]
     Active Substance: ASCORBIC ACID
     Indication: Respiratory tract infection
     Dosage: 500 MILLIGRAM
     Route: 048
  15. ASCORBIC ACID [Concomitant]
     Active Substance: ASCORBIC ACID
     Indication: COVID-19
     Dosage: 500 MILLIGRAM
     Route: 048
     Dates: start: 20211013, end: 20211024

REACTIONS (1)
  - COVID-19 [Fatal]

NARRATIVE: CASE EVENT DATE: 20211013
